FAERS Safety Report 5194062-4 (Version None)
Quarter: 2006Q4

REPORT INFORMATION
  Report Type: 
  Country: None (occurrence: None)
  Receive Date: 20061222
  Receipt Date: 20061208
  Transmission Date: 20070319
  Serious: Yes (Other)
  Sender: FDA-Public Use
  Company Number: 2004102771

PATIENT
  Age: 45 Year
  Sex: Female

DRUGS (4)
  1. NEURONTIN [Suspect]
     Indication: PAIN
     Dosage: 1800 MG (600 MG, 3 IN 1 D)
     Dates: start: 20010101
  2. XANAX [Suspect]
     Dosage: 3 MG (1 MG, 3 IN 1 D)
  3. BENADRYL [Concomitant]
  4. ZANAFLEX [Suspect]
     Dosage: 8 MG (4 MG, 2 IN 1 D)
     Dates: start: 20010101

REACTIONS (7)
  - HAEMORRHAGE [None]
  - INTENTIONAL SELF-INJURY [None]
  - LOSS OF CONSCIOUSNESS [None]
  - MAJOR DEPRESSION [None]
  - MULTIPLE DRUG OVERDOSE INTENTIONAL [None]
  - SUICIDAL IDEATION [None]
  - SUICIDE ATTEMPT [None]
